FAERS Safety Report 6306858-3 (Version None)
Quarter: 2009Q3

REPORT INFORMATION
  Report Type: 
  Country: None (occurrence: None)
  Receive Date: 20090812
  Receipt Date: 20090731
  Transmission Date: 20100115
  Serious: Yes (Other)
  Sender: FDA-Public Use
  Company Number: GB-PFIZER INC-2009248513

PATIENT
  Age: 23 Year

DRUGS (4)
  1. CHAMPIX [Suspect]
     Indication: SMOKING CESSATION THERAPY
     Dosage: 1 MG, 2X/DAY
     Route: 048
     Dates: start: 20090629, end: 20090708
  2. CHAMPIX [Suspect]
     Dosage: 0.5 MG, 1X/DAY
  3. TELFAST [Concomitant]
     Dosage: 180 MG, UNK
     Route: 048
  4. MARIJUANA [Concomitant]

REACTIONS (5)
  - CRYING [None]
  - DEPRESSED MOOD [None]
  - DEPRESSION [None]
  - PERSONALITY CHANGE [None]
  - VIOLENCE-RELATED SYMPTOM [None]
